FAERS Safety Report 8446894-4 (Version None)
Quarter: 2012Q2

REPORT INFORMATION
  Report Type: 
  Country: None (occurrence: None)
  Receive Date: 20120612
  Receipt Date: 20120612
  Transmission Date: 20120825
  Serious: Yes (Hospitalization)
  Sender: FDA-Public Use
  Company Number: None

PATIENT
  Sex: Female
  Weight: 13.9 kg

DRUGS (5)
  1. PEG-L-ASPARAGINASE (PEGASPARGASE, ONCOSPAR) [Suspect]
     Dosage: 1500 IU
  2. CYTARABINE [Suspect]
     Dosage: 50 MG
  3. METHOTREXATE [Suspect]
     Dosage: 20 MG
  4. DEXAMETHASONE [Suspect]
     Dosage: 100.8 MG
  5. VINCRISTINE SULFATE [Suspect]
     Dosage: 3.7 MG

REACTIONS (6)
  - WEIGHT INCREASED [None]
  - BLOOD CHOLESTEROL INCREASED [None]
  - GENERALISED OEDEMA [None]
  - BLOOD TRIGLYCERIDES INCREASED [None]
  - HYPOALBUMINAEMIA [None]
  - BLOOD ELECTROLYTES ABNORMAL [None]
